FAERS Safety Report 10058346 (Version 1)
Quarter: 2014Q2

REPORT INFORMATION
  Report Type: Spontaneous
  Country: GB (occurrence: GB)
  Receive Date: 20140404
  Receipt Date: 20140404
  Transmission Date: 20141212
  Serious: Yes (Disabling)
  Sender: FDA-Public Use
  Company Number: GB-ACCORD-022784

PATIENT
  Age: 73 Year
  Sex: Female
  Weight: 80.4 kg

DRUGS (12)
  1. SIMVASTATIN [Suspect]
     Indication: PRODUCT USED FOR UNKNOWN INDICATION
     Dates: start: 20140312
  2. AMOXICILLIN [Concomitant]
     Dates: start: 20131231, end: 20140105
  3. TRIMETHOPRIM/TRIMETHOPRIM LACTATE/TRIMETHOPRIM SULFATE [Concomitant]
     Dates: start: 20140127, end: 20140130
  4. CLOPIDOGREL [Concomitant]
     Dates: start: 20131118
  5. AMLODIPINE [Concomitant]
     Dates: start: 20131223
  6. ETORICOXIB [Concomitant]
     Dates: start: 20131031
  7. LANSOPRAZOLE [Concomitant]
     Dates: start: 20131223
  8. BISOPROLOL [Concomitant]
     Dates: start: 20131118
  9. IRON [Concomitant]
     Dates: start: 20131223
  10. NITROFURANTOIN/NITROFURANTOIN SODIUM [Concomitant]
     Dates: start: 20140206, end: 20140303
  11. ADCAL [Concomitant]
     Dates: start: 20131031
  12. BENDROFLUMETHIAZIDE [Concomitant]
     Dates: start: 20131223

REACTIONS (1)
  - Pain [Recovered/Resolved]
